FAERS Safety Report 6337014-0 (Version None)
Quarter: 2009Q3

REPORT INFORMATION
  Report Type: 
  Country: None (occurrence: None)
  Receive Date: 20090820
  Receipt Date: 20090805
  Transmission Date: 20100115
  Serious: Yes (Hospitalization)
  Sender: FDA-Public Use
  Company Number: 20090805CINRY1067

PATIENT
  Age: 32 Year
  Sex: Female

DRUGS (8)
  1. CINRYZE [Suspect]
     Indication: HEREDITARY ANGIOEDEMA
     Dosage: 1000 UNIT, 2 IN 1 WK, INTRAVENOUS
     Route: 042
     Dates: start: 20090122
  2. CINRYZE [Suspect]
     Indication: PROPHYLAXIS
     Dosage: 1000 UNIT, 2 IN 1 WK, INTRAVENOUS
     Route: 042
     Dates: start: 20090122
  3. CLONAZEPAM [Concomitant]
  4. OXYCODONE SUSTAINED RELEASE (OXYCODONE HYDROCHLORIDE) [Concomitant]
  5. YASMIN (DROSPIRENONE W/ETHYINYLESTRADIOL) [Concomitant]
  6. PERCOCET [Concomitant]
  7. PHENEGRAN (PROMETHAZINE) [Concomitant]
  8. FLUOXETINE [Concomitant]

REACTIONS (2)
  - CATHETER RELATED COMPLICATION [None]
  - DEEP VEIN THROMBOSIS [None]
